FAERS Safety Report 5060292-5 (Version None)
Quarter: 2006Q3

REPORT INFORMATION
  Report Type: 
  Country: None (occurrence: None)
  Receive Date: 20060720
  Receipt Date: 20060710
  Transmission Date: 20061208
  Serious: Yes (Hospitalization)
  Sender: FDA-Public Use
  Company Number: 2006-01733

PATIENT
  Age: 45 Year
  Sex: Female

DRUGS (3)
  1. VELCADE [Suspect]
     Indication: MULTIPLE MYELOMA
     Dosage: 2.60 MG, INTRAVENOUS; 1.90 MG, INTRAVENOUS
     Route: 042
     Dates: start: 20050111, end: 20050101
  2. VELCADE [Suspect]
     Indication: MULTIPLE MYELOMA
     Dosage: 2.60 MG, INTRAVENOUS; 1.90 MG, INTRAVENOUS
     Route: 042
     Dates: start: 20050101
  3. THALIDOMIDE [Concomitant]

REACTIONS (1)
  - ATRIAL THROMBOSIS [None]
